FAERS Safety Report 6416204-2 (Version None)
Quarter: 2009Q4

REPORT INFORMATION
  Report Type: 
  Country: None (occurrence: None)
  Receive Date: 20091027
  Receipt Date: 20091019
  Transmission Date: 20100525
  Serious: Yes (Life-Threatening, Other)
  Sender: FDA-Public Use
  Company Number: JP-PFIZER INC-2009287591

PATIENT
  Age: 79 Year

DRUGS (18)
  1. CELECOX [Suspect]
     Dosage: UNK
     Route: 048
     Dates: end: 20090914
  2. CELECOX [Suspect]
     Dosage: UNK
     Route: 048
     Dates: start: 20090924
  3. RHEUMATREX [Suspect]
     Indication: MUSCULOSKELETAL PAIN
     Dosage: 6 MG, WEEKLY
     Route: 048
     Dates: start: 20090911, end: 20090914
  4. PA [Suspect]
     Dosage: UNK
     Dates: end: 20090914
  5. CERCINE [Concomitant]
  6. MUCOSTA [Concomitant]
  7. FLUITRAN [Concomitant]
  8. LASIX [Concomitant]
  9. BLOPRESS [Concomitant]
  10. ALENDRONATE SODIUM [Concomitant]
  11. GOREI-SAN [Concomitant]
  12. SHAKUYAKUKANZOUTOU [Concomitant]
  13. ALESION [Concomitant]
  14. URINORM [Concomitant]
  15. LANSOPRAZOLE [Concomitant]
  16. TRANSAMIN [Concomitant]
  17. REMICADE [Concomitant]
  18. ETANERCEPT [Concomitant]

REACTIONS (1)
  - BONE MARROW FAILURE [None]
